FAERS Safety Report 11215249 (Version 1)
Quarter: 2015Q2

REPORT INFORMATION
  Report Type: Spontaneous
  Country: US (occurrence: US)
  Receive Date: 20150624
  Receipt Date: 20150624
  Transmission Date: 20150821
  Serious: No
  Sender: FDA-Public Use
  Company Number: US-PFIZER INC-2015165608

PATIENT
  Age: 76 Year
  Sex: Male
  Weight: 86 kg

DRUGS (3)
  1. SUTENT [Suspect]
     Active Substance: SUNITINIB MALATE
     Dosage: 37.5 MG, CYCLIC (TOOK THAT FOR 28 DAYS AND THEN HAD 2 WEEKS OFF)
     Route: 048
     Dates: start: 2015, end: 20150614
  2. SUTENT [Suspect]
     Active Substance: SUNITINIB MALATE
     Indication: RENAL CELL CARCINOMA STAGE IV
     Dosage: 50 MG, CYCLIC (TOOK THAT FOR 28 DAYS AND THEN HAD 2 WEEKS OFF)
     Route: 048
     Dates: start: 20150330, end: 2015
  3. AMLODIPINE [Concomitant]
     Active Substance: AMLODIPINE BESYLATE
     Indication: HYPERTENSION
     Dosage: 10 MG, UNK

REACTIONS (5)
  - Rash [Recovering/Resolving]
  - Mouth ulceration [Recovering/Resolving]
  - Insomnia [Recovering/Resolving]
  - Oral herpes [Recovering/Resolving]
  - Diarrhoea [Recovering/Resolving]

NARRATIVE: CASE EVENT DATE: 2015
